FAERS Safety Report 25913825 (Version 4)
Quarter: 2025Q4

REPORT INFORMATION
  Report Type: Report from Study
  Country: CA (occurrence: CA)
  Receive Date: 20251013
  Receipt Date: 20251206
  Transmission Date: 20260118
  Serious: Yes (Hospitalization, Other)
  Sender: IPSEN BIOPHARMACEUTICALS, INC.
  Company Number: CA-IPSEN Group, Research and Development-2025-25267

PATIENT
  Age: 65 Year
  Sex: Female

DRUGS (1)
  1. LANREOTIDE ACETATE [Suspect]
     Active Substance: LANREOTIDE ACETATE
     Indication: Gastroenteropancreatic neuroendocrine tumour disease
     Dosage: DEEP SC
     Route: 058
     Dates: start: 20250227

REACTIONS (16)
  - Syncope [Not Recovered/Not Resolved]
  - Presyncope [Not Recovered/Not Resolved]
  - Malignant neoplasm progression [Not Recovered/Not Resolved]
  - Loss of consciousness [Recovering/Resolving]
  - Oedema peripheral [Recovering/Resolving]
  - Diarrhoea [Recovering/Resolving]
  - Flushing [Recovering/Resolving]
  - Mood altered [Recovering/Resolving]
  - Drug ineffective [Unknown]
  - Presyncope [Recovering/Resolving]
  - Injection site pain [Recovering/Resolving]
  - Injection site haemorrhage [Recovering/Resolving]
  - Pallor [Recovering/Resolving]
  - Fatigue [Recovering/Resolving]
  - Carotid pulse abnormal [Recovering/Resolving]
  - Heart rate decreased [Recovering/Resolving]

NARRATIVE: CASE EVENT DATE: 20250101
